FAERS Safety Report 11260885 (Version 1)
Quarter: 2015Q3

REPORT INFORMATION
  Report Type: Spontaneous
  Country: JP (occurrence: JP)
  Receive Date: 20150710
  Receipt Date: 20150710
  Transmission Date: 20151125
  Serious: Yes (Other)
  Sender: FDA-Public Use
  Company Number: JP-GLAXOSMITHKLINE-JP2015JPN096550

PATIENT
  Age: 12 Year
  Sex: Male
  Weight: 37 kg

DRUGS (3)
  1. CELESTAMINE [Concomitant]
     Active Substance: BETAMETHASONE\DEXCHLORPHENIRAMINE MALEATE
     Dosage: 1 DF, PRN
  2. EBASTINE [Suspect]
     Active Substance: EBASTINE
     Indication: SEASONAL ALLERGY
     Dosage: 10 MG, 1D
     Route: 048
     Dates: start: 20150306, end: 20150307
  3. ALLERMIST [Suspect]
     Active Substance: FLUTICASONE FUROATE
     Indication: SEASONAL ALLERGY
     Dosage: UNK
     Route: 045
     Dates: start: 20150306

REACTIONS (2)
  - Pollakiuria [Unknown]
  - Urinary retention [Unknown]

NARRATIVE: CASE EVENT DATE: 20150306
